FAERS Safety Report 6056635-6 (Version None)
Quarter: 2009Q1

REPORT INFORMATION
  Report Type: 
  Country: None (occurrence: None)
  Receive Date: 20090129
  Receipt Date: 20081205
  Transmission Date: 20090719
  Serious: Yes (Life-Threatening, Hospitalization)
  Sender: FDA-Public Use
  Company Number: GB-PFIZER INC-2008154543

PATIENT

DRUGS (4)
  1. SERTRALINE HCL [Suspect]
     Dosage: UNK
     Route: 048
     Dates: start: 20080613
  2. BLINDED *MIRTAZAPINE [Suspect]
  3. BLINDED *PLACEBO [Suspect]
  4. BLINDED SERTRALINE HCL [Suspect]

REACTIONS (2)
  - AORTIC STENOSIS [None]
  - CARDIAC FAILURE [None]
